FAERS Safety Report 7750370-1 (Version None)
Quarter: 2011Q3

REPORT INFORMATION
  Report Type: 
  Country: None (occurrence: None)
  Receive Date: 20110912
  Receipt Date: 20110906
  Transmission Date: 20111222
  Serious: Yes (Death)
  Sender: FDA-Public Use
  Company Number: 20109844

PATIENT
  Age: 30 Year
  Sex: Female
  Weight: 61 kg

DRUGS (1)
  1. BACLOFEN [Suspect]
     Indication: MUSCLE SPASTICITY
     Dosage: SEE B5, MCG, DAILY, INTRATHECAL
     Route: 037

REACTIONS (4)
  - ASTHMA [None]
  - ASPIRATION [None]
  - TRACHEAL OBSTRUCTION [None]
  - ASPHYXIA [None]
